FAERS Safety Report 5994749-7 (Version None)
Quarter: 2008Q4

REPORT INFORMATION
  Report Type: 
  Country: None (occurrence: None)
  Receive Date: 20081212
  Receipt Date: 20080912
  Transmission Date: 20090506
  Serious: No
  Sender: FDA-Public Use
  Company Number: US-ABBOTT-08P-163-0476021-00

PATIENT
  Sex: Male
  Weight: 79.45 kg

DRUGS (2)
  1. HUMIRA [Suspect]
     Indication: CROHN'S DISEASE
     Route: 050
     Dates: start: 20070101
  2. PAROXETINE HCL [Concomitant]
     Indication: CROHN'S DISEASE
     Route: 048
     Dates: start: 20050101

REACTIONS (1)
  - ACCIDENTAL EXPOSURE [None]
